FAERS Safety Report 14410864 (Version 4)
Quarter: 2018Q2

REPORT INFORMATION
  Report Type: Report from Study
  Country: US (occurrence: US)
  Receive Date: 20180119
  Receipt Date: 20180404
  Transmission Date: 20180711
  Serious: Yes (Death, Hospitalization, Other)
  Sender: FDA-Public Use
  Company Number: US-GILEAD-2017-0312724

PATIENT
  Age: 76 Year
  Sex: Female

DRUGS (6)
  1. REMODULIN [Suspect]
     Active Substance: TREPROSTINIL
     Dosage: 13NKM
     Route: 042
     Dates: start: 20171221
  2. REMODULIN [Suspect]
     Active Substance: TREPROSTINIL
     Indication: PRODUCT USED FOR UNKNOWN INDICATION
     Dosage: 1 MG, UNK
     Route: 042
  3. REMODULIN [Suspect]
     Active Substance: TREPROSTINIL
     Dosage: 12NKM
     Route: 042
     Dates: start: 201712
  4. ADCIRCA [Concomitant]
     Active Substance: TADALAFIL
     Dosage: 20 MG, BID
  5. AMBRISENTAN [Suspect]
     Active Substance: AMBRISENTAN
     Indication: PULMONARY HYPERTENSION
     Dosage: 10 MG, QD
     Route: 065
     Dates: start: 20141021
  6. REMODULIN [Suspect]
     Active Substance: TREPROSTINIL
     Dosage: 13NKM
     Route: 042

REACTIONS (3)
  - Nausea [Unknown]
  - Pleural effusion [Fatal]
  - Pain in extremity [Unknown]

NARRATIVE: CASE EVENT DATE: 20171215
